FAERS Safety Report 20954265 (Version 1)
Quarter: 2022Q2

REPORT INFORMATION
  Report Type: Spontaneous
  Country: US (occurrence: US)
  Receive Date: 20220614
  Receipt Date: 20220614
  Transmission Date: 20220721
  Serious: Yes (Other)
  Sender: FDA-Public Use
  Company Number: US-ORGANON-O2206USA001049

PATIENT
  Age: 20 Year
  Sex: Female
  Weight: 48.98 kg

DRUGS (1)
  1. NEXPLANON [Suspect]
     Active Substance: ETONOGESTREL
     Dosage: 1 IMPLANT OF 68 MG,NON-DOMINANT ARM
     Route: 059

REACTIONS (3)
  - Device dislocation [Not Recovered/Not Resolved]
  - Device issue [Not Recovered/Not Resolved]
  - No adverse event [Unknown]
